FAERS Safety Report 15501546 (Version 1)
Quarter: 2018Q4

REPORT INFORMATION
  Report Type: Spontaneous
  Country: US (occurrence: US)
  Receive Date: 20181015
  Receipt Date: 20181015
  Transmission Date: 20190205
  Serious: No
  Sender: FDA-Public Use
  Company Number: US-009507513-1810USA001319

PATIENT
  Age: 49 Year
  Sex: Female
  Weight: 116.55 kg

DRUGS (1)
  1. NEXPLANON [Suspect]
     Active Substance: ETONOGESTREL
     Dosage: A ROD
     Route: 059
     Dates: start: 2015, end: 20180721

REACTIONS (2)
  - No adverse event [Unknown]
  - Device breakage [Recovered/Resolved]
